FAERS Safety Report 11827792 (Version 2)
Quarter: 2016Q1

REPORT INFORMATION
  Report Type: Spontaneous
  Country: CH (occurrence: CH)
  Receive Date: 20151211
  Receipt Date: 20160113
  Transmission Date: 20160525
  Serious: Yes (Hospitalization)
  Sender: FDA-Public Use
  Company Number: CH-TEVA-615964ISR

PATIENT
  Age: 23 Year
  Sex: Female

DRUGS (25)
  1. IRFEN [Suspect]
     Active Substance: IBUPROFEN
     Indication: ANALGESIC THERAPY
     Dosage: 1600 MILLIGRAM DAILY;
     Route: 048
     Dates: start: 20150607, end: 20150626
  2. CO-AMOXI-MEPHA I.V. [Suspect]
     Active Substance: AMOXICILLIN\CLAVULANATE POTASSIUM
     Indication: DEVICE RELATED SEPSIS
     Dosage: 3600 MILLIGRAM DAILY; 1200MG CO-AMOXI-MEPHA I.V. = 1000 MG AMOXICILLIN AND 200MG CLAVULANIC ACID
     Route: 042
     Dates: start: 20150607, end: 20150615
  3. KETAMIN [Suspect]
     Active Substance: KETAMINE
     Indication: ANALGESIC THERAPY
     Dosage: AS REQUIRED, DOSE: UP TO 4 TIMES PER DAY
     Route: 042
     Dates: start: 20150610, end: 20150625
  4. PIPERACILLIN/TAZOBACTAM SANDOZ [Suspect]
     Active Substance: PIPERACILLIN SODIUM\TAZOBACTAM SODIUM
     Indication: BACTERIAL INFECTION
     Dosage: 13.5 GRAM DAILY; NO PRECISE INFORMATION ON DOSAGE
     Route: 042
     Dates: start: 20150626, end: 20150629
  5. PANTOZOL [Concomitant]
     Active Substance: PANTOPRAZOLE SODIUM
     Route: 048
     Dates: start: 20150626, end: 20150626
  6. SUPRADYN ENERGY [Concomitant]
     Indication: MINERAL SUPPLEMENTATION
     Dosage: 1 DOSAGE FORMS DAILY;
     Route: 048
     Dates: start: 20150608, end: 20150707
  7. TEMESTA [Concomitant]
     Active Substance: LORAZEPAM
     Dosage: AS REQUIRED
     Route: 048
     Dates: start: 20150622
  8. TEMGESIC [Suspect]
     Active Substance: BUPRENORPHINE HYDROCHLORIDE
     Indication: ANALGESIC THERAPY
     Dosage: AS REQUIRED
     Route: 048
     Dates: start: 20150610, end: 20150623
  9. NOVALGIN [Suspect]
     Active Substance: METAMIZOLE SODIUM
     Indication: ANALGESIC THERAPY
     Dosage: AS REQUIRED, UP TO 4 TIMES PER DAY
     Route: 042
     Dates: start: 20150607, end: 20150626
  10. PRIMPERAN [Suspect]
     Active Substance: METOCLOPRAMIDE HYDROCHLORIDE
     Indication: NAUSEA
     Route: 065
     Dates: start: 20150607, end: 20150626
  11. TRANSTEC [Suspect]
     Active Substance: BUPRENORPHINE
     Indication: ANALGESIC THERAPY
     Dosage: .25 DOSAGE FORMS DAILY;
     Route: 062
     Dates: start: 20150609, end: 20150626
  12. FRAGMIN [Concomitant]
     Active Substance: DALTEPARIN SODIUM
     Dosage: 5000 IU (INTERNATIONAL UNIT) DAILY;
     Route: 058
     Dates: start: 20150615, end: 20150706
  13. DUPHALAC [Concomitant]
     Active Substance: LACTULOSE
     Dosage: AS REQUIRED
     Route: 048
     Dates: start: 20150610, end: 20150705
  14. PERFALGAN [Concomitant]
     Active Substance: ACETAMINOPHEN
     Dosage: AS REQUIRED
     Route: 065
     Dates: start: 20150624
  15. FRAGMIN [Concomitant]
     Active Substance: DALTEPARIN SODIUM
     Dosage: 5000 IU (INTERNATIONAL UNIT) DAILY;
     Route: 058
     Dates: start: 20150607, end: 20150607
  16. DAFALGAN [Concomitant]
     Active Substance: ACETAMINOPHEN
     Indication: ANALGESIC THERAPY
     Dosage: AS REQUIRED, UP TO 4 TIMES PER DAY
     Route: 048
     Dates: start: 20150606, end: 20150626
  17. ZINK VERLA [Concomitant]
     Active Substance: ZINC GLUCONATE
     Dosage: 1 DOSAGE FORMS DAILY;
     Route: 048
     Dates: start: 20150611, end: 20150706
  18. DAFALGAN [Concomitant]
     Active Substance: ACETAMINOPHEN
     Dosage: 1 GRAM DAILY; 1G PER DAY
     Route: 048
     Dates: start: 20150701, end: 20150702
  19. ACTIQ [Concomitant]
     Active Substance: FENTANYL CITRATE
     Indication: ANALGESIC THERAPY
     Dosage: AS REQUIRED
     Route: 048
     Dates: start: 20150612
  20. CO-AMOXI-MEPHA I.V. [Suspect]
     Active Substance: AMOXICILLIN\CLAVULANATE POTASSIUM
     Indication: INFECTION PROPHYLAXIS
     Dosage: 1200 MILLIGRAM DAILY; 1200MG CO-AMOXI-MEPHA I.V. = 1000 MG AMOXICILLIN AND 200MG CLAVULANIC ACID
     Route: 042
     Dates: start: 20150606, end: 20150606
  21. MORPHIN HCL SINTETICA [Concomitant]
     Dosage: AS REQUIRED
     Route: 048
     Dates: start: 20150607, end: 20150706
  22. ANGINA MCC [Concomitant]
     Active Substance: CETYLPYRIDINIUM CHLORIDE\LEVOMENTHOL\LIDOCAINE HYDROCHLORIDE
     Dosage: AS REQUIRED
     Route: 048
     Dates: start: 20150612, end: 20150615
  23. FENTANYL-MEPHA [Concomitant]
     Active Substance: FENTANYL
     Indication: ANALGESIC THERAPY
     Dosage: .3333 DOSAGE FORMS DAILY;
     Dates: start: 20150626
  24. CO-AMOXI-MEPHA I.V. [Suspect]
     Active Substance: AMOXICILLIN\CLAVULANATE POTASSIUM
     Dosage: 1200 MILLIGRAM DAILY; 1200MG CO-AMOXI-MEPHA I.V. = 1000 MG AMOXICILLIN AND 200MG CLAVULANIC ACID
     Route: 042
     Dates: start: 20150617, end: 20150618
  25. MOVICOL [Concomitant]
     Active Substance: POLYETHYLENE GLYCOL 3350\POTASSIUM CHLORIDE\SODIUM BICARBONATE\SODIUM CHLORIDE
     Dosage: 1 DOSAGE FORMS DAILY;
     Route: 048
     Dates: start: 20150622, end: 20150622

REACTIONS (8)
  - Drug reaction with eosinophilia and systemic symptoms [Recovered/Resolved]
  - Pharyngitis [Recovered/Resolved]
  - Transaminases increased [Recovered/Resolved]
  - Cholestasis [None]
  - Rash macular [Recovered/Resolved]
  - Eosinophilia [Recovered/Resolved]
  - Serum ferritin increased [None]
  - Lymphocytosis [Recovered/Resolved]

NARRATIVE: CASE EVENT DATE: 201506
